FAERS Safety Report 8397165-6 (Version None)
Quarter: 2012Q2

REPORT INFORMATION
  Report Type: 
  Country: None (occurrence: None)
  Receive Date: 20120530
  Receipt Date: 20120527
  Transmission Date: 20120825
  Serious: No
  Sender: FDA-Public Use
  Company Number: US-PFIZER INC-2012127357

PATIENT
  Sex: Male
  Weight: 12.245 kg

DRUGS (2)
  1. CHILDREN'S ADVIL COLD [Suspect]
     Indication: OROPHARYNGEAL PAIN
     Dosage: UNK
     Route: 048
     Dates: start: 20120526
  2. CHILDREN'S ADVIL COLD [Suspect]
     Indication: TONSILLAR DISORDER

REACTIONS (3)
  - PSYCHOMOTOR HYPERACTIVITY [None]
  - FAECES DISCOLOURED [None]
  - DIARRHOEA [None]
